FAERS Safety Report 5752452-2 (Version None)
Quarter: 2008Q2

REPORT INFORMATION
  Report Type: 
  Country: None (occurrence: None)
  Receive Date: 20080529
  Receipt Date: 20080516
  Transmission Date: 20081010
  Serious: Yes (Other)
  Sender: FDA-Public Use
  Company Number: GB-BAUSCH-2008BL002217

PATIENT
  Age: 64 Year
  Sex: Female

DRUGS (3)
  1. PREDNISOLONE SODIUM PHOSPHATE [Suspect]
     Indication: CORNEAL TRANSPLANT
     Route: 047
  2. OFLOXACIN [Suspect]
     Indication: CORNEAL TRANSPLANT
     Route: 047
  3. TIMOLOL MALEATE [Suspect]
     Indication: GLAUCOMA
     Route: 047

REACTIONS (3)
  - CORNEAL DEGENERATION [None]
  - CORNEAL DEPOSITS [None]
  - TRANSPLANT FAILURE [None]
